FAERS Safety Report 8491124-0 (Version None)
Quarter: 2012Q3

REPORT INFORMATION
  Report Type: 
  Country: None (occurrence: None)
  Receive Date: 20120706
  Receipt Date: 20120702
  Transmission Date: 20120928
  Serious: Yes (Hospitalization)
  Sender: FDA-Public Use
  Company Number: US-BAYER-2012-053233

PATIENT
  Age: 21 Year
  Sex: Female
  Weight: 72.562 kg

DRUGS (3)
  1. YAZ [Suspect]
     Indication: POLYCYSTIC OVARIES
     Dosage: UNK
     Dates: start: 20070827, end: 20100303
  2. ACETAMINOPHEN [Concomitant]
     Dosage: UNK UNK, PRN
  3. REGLAN [Concomitant]

REACTIONS (5)
  - PAIN [None]
  - PAIN IN EXTREMITY [None]
  - DEEP VEIN THROMBOSIS [None]
  - INJURY [None]
  - MUSCULOSKELETAL STIFFNESS [None]
